FAERS Safety Report 13536925 (Version 1)
Quarter: 2017Q2

REPORT INFORMATION
  Report Type: Report from Study
  Country: US (occurrence: US)
  Receive Date: 20170511
  Receipt Date: 20170511
  Transmission Date: 20170830
  Serious: Yes (Other)
  Sender: FDA-Public Use
  Company Number: PHEH2017US013783

PATIENT
  Sex: Female
  Weight: 86.17 kg

DRUGS (1)
  1. GILENYA [Suspect]
     Active Substance: FINGOLIMOD HYDROCHLORIDE
     Indication: MULTIPLE SCLEROSIS
     Dosage: 0.5 MG, QD
     Route: 048
     Dates: start: 20151222

REACTIONS (6)
  - Bone neoplasm [Unknown]
  - Pain [Unknown]
  - Concomitant disease aggravated [Unknown]
  - Pain in extremity [Unknown]
  - Breast mass [Unknown]
  - Pulmonary mass [Unknown]
